FAERS Safety Report 21874425 (Version 2)
Quarter: 2023Q1

REPORT INFORMATION
  Report Type: Spontaneous
  Country: US (occurrence: US)
  Receive Date: 20230117
  Receipt Date: 20230124
  Transmission Date: 20230417
  Serious: Yes (Other)
  Sender: FDA-Public Use
  Company Number: US-LUNDBECK-DKLU3056978

PATIENT
  Age: 12 Year
  Sex: Male
  Weight: 40 kg

DRUGS (12)
  1. SABRIL [Suspect]
     Active Substance: VIGABATRIN
     Indication: Infantile spasms
     Route: 048
  2. TOPIRAMATE [Concomitant]
     Active Substance: TOPIRAMATE
     Indication: Product used for unknown indication
     Dosage: 25 MG/ML
     Route: 065
  3. SULFATRIM [Concomitant]
     Active Substance: SULFAMETHOXAZOLE\TRIMETHOPRIM
     Indication: Product used for unknown indication
     Dosage: 200-400 MG/5 ML
     Route: 065
  4. DICLOFENAC SODIUM [Concomitant]
     Active Substance: DICLOFENAC SODIUM
     Indication: Product used for unknown indication
     Route: 065
  5. CLARITIN [Concomitant]
     Active Substance: LORATADINE
     Indication: Product used for unknown indication
     Dosage: 5 MG/5 ML
     Route: 065
  6. VITAMIN B6 [Concomitant]
     Active Substance: PYRIDOXINE HYDROCHLORIDE
     Indication: Product used for unknown indication
     Route: 065
  7. KEPPRA [Concomitant]
     Active Substance: LEVETIRACETAM
     Indication: Product used for unknown indication
     Dosage: 100 MG/ML
     Route: 065
  8. TOPIRAMATE [Concomitant]
     Active Substance: TOPIRAMATE
     Indication: Product used for unknown indication
     Dosage: 50 MG/5 ML
     Route: 065
  9. TOPIRAMATE [Concomitant]
     Active Substance: TOPIRAMATE
     Dosage: 50 MG/5 ML
     Route: 065
  10. TOPIRAMATE [Concomitant]
     Active Substance: TOPIRAMATE
     Dosage: 50 MG/5 ML, RECEIVED 6 MG/KG
     Route: 065
  11. SIROLIMUS [Concomitant]
     Active Substance: SIROLIMUS
     Indication: Product used for unknown indication
     Route: 065
  12. DAYTRANA [Concomitant]
     Active Substance: METHYLPHENIDATE
     Indication: Attention deficit hyperactivity disorder
     Route: 061

REACTIONS (4)
  - Seizure [Recovered/Resolved]
  - Appetite disorder [Unknown]
  - Pain [Unknown]
  - Incontinence [Unknown]
